FAERS Safety Report 5382476-9 (Version None)
Quarter: 2007Q3

REPORT INFORMATION
  Report Type: 
  Country: None (occurrence: None)
  Receive Date: 20070703
  Receipt Date: 20061221
  Transmission Date: 20080115
  Serious: Yes (Other)
  Sender: FDA-Public Use
  Company Number: US-JNJFOC-20061006669

PATIENT
  Sex: Male

DRUGS (1)
  1. MOTRIN IB [Suspect]
     Indication: HEADACHE
     Dosage: 400 MG, 1 IN 1 TOTAL;
     Dates: start: 20061022, end: 20061022

REACTIONS (1)
  - RASH PRURITIC [None]
